FAERS Safety Report 5512938-2 (Version None)
Quarter: 2007Q4

REPORT INFORMATION
  Report Type: 
  Country: None (occurrence: None)
  Receive Date: 20071112
  Receipt Date: 20071106
  Transmission Date: 20080405
  Serious: Yes (Life-Threatening, Other)
  Sender: FDA-Public Use
  Company Number: FR-BRISTOL-MYERS SQUIBB COMPANY-13973110

PATIENT
  Age: 68 Year
  Sex: Male

DRUGS (10)
  1. TAXOL [Suspect]
     Indication: ANGIOSARCOMA
     Dosage: THE FIRST COURSE WAS PERFORMED ON 14-AUG-2007 AT THE DOSE OF 60MG/M2
     Dates: start: 20070903, end: 20070903
  2. PLAVIX [Concomitant]
  3. AMLOR [Concomitant]
  4. FONZYLANE [Concomitant]
  5. CRESTOR [Concomitant]
  6. NORMACOL [Concomitant]
  7. PERINDOPRIL ERBUMINE [Concomitant]
  8. ACETAMINOPHEN [Concomitant]
  9. SKENAN [Concomitant]
  10. ACTISKENAN [Concomitant]

REACTIONS (3)
  - CARDIO-RESPIRATORY ARREST [None]
  - EPILEPSY [None]
  - LIVER FUNCTION TEST ABNORMAL [None]
